FAERS Safety Report 16741125 (Version 1)
Quarter: 2019Q3

REPORT INFORMATION
  Report Type: Spontaneous
  Country: GB (occurrence: GB)
  Receive Date: 20190826
  Receipt Date: 20190826
  Transmission Date: 20191005
  Serious: Yes (Life-Threatening)
  Sender: FDA-Public Use
  Company Number: GB-PFIZER INC-2019362395

PATIENT
  Age: 45 Year
  Sex: Female
  Weight: 94.3 kg

DRUGS (3)
  1. BEVACIZUMAB. [Suspect]
     Active Substance: BEVACIZUMAB
     Indication: VAGINAL ADENOCARCINOMA
     Dosage: 700 MG, UNK
     Route: 042
     Dates: start: 20181228, end: 20190412
  2. PACLITAXEL. [Concomitant]
     Active Substance: PACLITAXEL
     Dosage: UNK
     Dates: start: 201812, end: 201903
  3. CARBOPLATIN. [Concomitant]
     Active Substance: CARBOPLATIN
     Dosage: UNK
     Dates: start: 201812, end: 201903

REACTIONS (4)
  - Guillain-Barre syndrome [Recovering/Resolving]
  - Asthenia [Unknown]
  - CSF protein increased [Unknown]
  - Hypoaesthesia [Unknown]

NARRATIVE: CASE EVENT DATE: 20190503
